FAERS Safety Report 4579801-5 (Version None)
Quarter: 2005Q1

REPORT INFORMATION
  Report Type: 
  Country: None (occurrence: None)
  Receive Date: 20050210
  Receipt Date: 20050204
  Transmission Date: 20050727
  Serious: Yes (Other)
  Sender: FDA-Public Use
  Company Number: 2005014135

PATIENT
  Age: 60 Year
  Sex: Male
  Weight: 106 kg

DRUGS (8)
  1. TAHOR (ATORVASTATIN) [Suspect]
     Indication: HYPERCHOLESTEROLAEMIA
     Dosage: 10 MG (1 IN 1 D)
     Dates: start: 20030605, end: 20030610
  2. KARVEA HCT (HYDROCHLOROTHIAZIDE, IRBESARTAN) [Concomitant]
  3. NIF-TEN (ATENOLOL, NIFEDIPINE) [Concomitant]
  4. METFORMIN HCL [Concomitant]
  5. ACETYLSALICYLIC ACID SRT [Concomitant]
  6. GLYBURIDE [Concomitant]
  7. HEXAQUINE (NIAOULI OIL, QUININE BENZOATE, THIAMINE HYDROCHLORIDE) [Concomitant]
  8. DIOSMIN (DIOSMIN) [Concomitant]

REACTIONS (1)
  - HEPATITIS TOXIC [None]
